FAERS Safety Report 7569495-9 (Version None)
Quarter: 2011Q2

REPORT INFORMATION
  Report Type: 
  Country: None (occurrence: None)
  Receive Date: 20110624
  Receipt Date: 20110614
  Transmission Date: 20111010
  Serious: Yes (Hospitalization)
  Sender: FDA-Public Use
  Company Number: JP-BIOGENIDEC-2011BI022826

PATIENT
  Age: 27 Year
  Sex: Female

DRUGS (10)
  1. PREDNISOLONE [Concomitant]
     Dates: start: 20100418, end: 20100506
  2. RABEPRAZOLE SODIUM [Concomitant]
     Dates: start: 20100329, end: 20100513
  3. PREDNISOLONE [Concomitant]
     Dates: start: 20100329, end: 20100409
  4. AVONEX [Suspect]
     Indication: MULTIPLE SCLEROSIS
     Route: 030
     Dates: start: 20100409, end: 20100415
  5. ACTONEL [Concomitant]
     Dates: start: 20100329, end: 20100510
  6. AVONEX [Suspect]
     Route: 030
     Dates: start: 20100423, end: 20100506
  7. PREDNISOLONE [Concomitant]
     Dates: start: 20100410, end: 20100417
  8. AVONEX [Suspect]
     Route: 030
     Dates: start: 20100416, end: 20100422
  9. PREDNISOLONE [Concomitant]
     Dates: start: 20100507, end: 20100513
  10. IBRUPROFEN [Concomitant]
     Dates: start: 20100409

REACTIONS (1)
  - HEPATIC FUNCTION ABNORMAL [None]
